FAERS Safety Report 25855841 (Version 1)
Quarter: 2025Q3

REPORT INFORMATION
  Report Type: Spontaneous
  Country: US (occurrence: US)
  Receive Date: 20250928
  Receipt Date: 20250928
  Transmission Date: 20251020
  Serious: Yes (Hospitalization)
  Sender: ACCORD
  Company Number: US-MLMSERVICE-20250910-PI638256-00218-2

PATIENT
  Age: 2 Decade
  Sex: Male

DRUGS (2)
  1. METHOTREXATE [Suspect]
     Active Substance: METHOTREXATE
     Indication: T-cell type acute leukaemia
     Route: 048
     Dates: start: 2023, end: 2023
  2. MERCAPTOPURINE [Suspect]
     Active Substance: MERCAPTOPURINE
     Indication: T-cell type acute leukaemia
     Route: 048
     Dates: start: 2023, end: 2023

REACTIONS (6)
  - Sepsis [Unknown]
  - Psoas abscess [Unknown]
  - Atrioventricular block first degree [Unknown]
  - Small intestinal obstruction [Unknown]
  - Wernicke^s encephalopathy [Unknown]
  - Myelosuppression [Unknown]

NARRATIVE: CASE EVENT DATE: 20230101
